FAERS Safety Report 6560255-4 (Version None)
Quarter: 2010Q1

REPORT INFORMATION
  Report Type: 
  Country: None (occurrence: None)
  Receive Date: 20100129
  Receipt Date: 20050329
  Transmission Date: 20100710
  Serious: No
  Sender: FDA-Public Use
  Company Number: US-ALLERGAN-200501179

PATIENT
  Age: 63 Year
  Sex: Female

DRUGS (1)
  1. BOTOX COSMETIC [Suspect]
     Indication: SKIN WRINKLING
     Dosage: GLABELLA, FOREHEAD
     Route: 030
     Dates: start: 20040707

REACTIONS (2)
  - EYELID PTOSIS [None]
  - HEAD DEFORMITY [None]
